FAERS Safety Report 7058258-9 (Version None)
Quarter: 2010Q4

REPORT INFORMATION
  Report Type: 
  Country: None (occurrence: None)
  Receive Date: 20101022
  Receipt Date: 20101013
  Transmission Date: 20110411
  Serious: No
  Sender: FDA-Public Use
  Company Number: US-PFIZER INC-2010130660

PATIENT

DRUGS (1)
  1. GLIPIZIDE [Suspect]

REACTIONS (1)
  - REACTION TO DRUG EXCIPIENTS [None]
